FAERS Safety Report 7653464-4 (Version None)
Quarter: 2011Q3

REPORT INFORMATION
  Report Type: 
  Country: None (occurrence: None)
  Receive Date: 20110803
  Receipt Date: 20110801
  Transmission Date: 20111222
  Serious: No
  Sender: FDA-Public Use
  Company Number: US-PFIZER INC-2011175978

PATIENT
  Sex: Male

DRUGS (1)
  1. TRAZODONE HCL [Suspect]
     Dosage: 225 MG, DAILY
     Route: 048

REACTIONS (5)
  - ABNORMAL DREAMS [None]
  - LIMB DISCOMFORT [None]
  - NECK PAIN [None]
  - ARTHRALGIA [None]
  - INSOMNIA [None]
